FAERS Safety Report 5697528-3 (Version None)
Quarter: 2008Q2

REPORT INFORMATION
  Report Type: 
  Country: None (occurrence: None)
  Receive Date: 20080408
  Receipt Date: 20071210
  Transmission Date: 20081010
  Serious: No
  Sender: FDA-Public Use
  Company Number: US-BAYER-200714107BCC

PATIENT
  Age: 82 Year
  Sex: Female
  Weight: 72 kg

DRUGS (5)
  1. ALEVE (CAPLET) [Suspect]
     Indication: ANALGESIA
     Dosage: TOTAL DAILY DOSE: 220 MG  UNIT DOSE: 220 MG
     Route: 048
     Dates: start: 20071101, end: 20071209
  2. ALEVE (CAPLET) [Suspect]
     Dosage: TOTAL DAILY DOSE: 440 MG  UNIT DOSE: 220 MG
     Route: 048
     Dates: start: 20071210
  3. PROTONIX [Concomitant]
  4. TRIAMTERENE [Concomitant]
  5. VERAPAMIL [Concomitant]

REACTIONS (1)
  - ANALGESIA [None]
